FAERS Safety Report 8276072-3 (Version None)
Quarter: 2012Q2

REPORT INFORMATION
  Report Type: 
  Country: None (occurrence: None)
  Receive Date: 20120405
  Receipt Date: 20120326
  Transmission Date: 20120825
  Serious: Yes (Disabling, Other)
  Sender: FDA-Public Use
  Company Number: ACO_29806_2012

PATIENT
  Age: 54 Year
  Sex: Male

DRUGS (2)
  1. AMPYRA [Suspect]
     Indication: PRODUCT USED FOR UNKNOWN INDICATION
     Dosage: 10 MG, Q 12 HRS, ORAL
     Route: 048
     Dates: start: 20111124
  2. ZANAFLEX [Concomitant]

REACTIONS (6)
  - TEMPERATURE INTOLERANCE [None]
  - ABASIA [None]
  - FALL [None]
  - DEHYDRATION [None]
  - DYSSTASIA [None]
  - FEELING ABNORMAL [None]
